FAERS Safety Report 12173837 (Version 4)
Quarter: 2020Q3

REPORT INFORMATION
  Report Type: Report from Study
  Country: JP (occurrence: JP)
  Receive Date: 20160314
  Receipt Date: 20161026
  Transmission Date: 20201104
  Serious: Yes (Hospitalization)
  Sender: FDA-Public Use
  Company Number: JP-ROCHE-1662772

PATIENT
  Age: 74 Year
  Sex: Male
  Weight: 77 kg

DRUGS (17)
  1. GLUFAST [Concomitant]
     Active Substance: MITIGLINIDE
     Dosage: THE FRACTIONATION DOSE FREQUENCY IS UNCERTAIN.
     Route: 048
     Dates: start: 20150421, end: 20150705
  2. ALECTINIB. [Suspect]
     Active Substance: ALECTINIB
     Indication: LUNG ADENOCARCINOMA
     Route: 048
     Dates: start: 20141206, end: 20141207
  3. TRANSAMIN [Concomitant]
     Active Substance: TRANEXAMIC ACID
     Indication: LUNG ADENOCARCINOMA
     Dosage: THE FRACTIONATION DOSE FREQUENCY IS UNCERTAIN.
     Route: 048
     Dates: end: 20150331
  4. GASTER [Concomitant]
     Active Substance: FAMOTIDINE
     Dosage: THE FRACTIONATION DOSE FREQUENCY IS UNCERTAIN.
     Route: 048
  5. OXINORM (JAPAN) [Concomitant]
     Active Substance: OXYCODONE HYDROCHLORIDE
     Indication: LUNG ADENOCARCINOMA
     Dosage: SINGLE USE
     Route: 048
     Dates: start: 20141210
  6. CARDENALIN [Concomitant]
     Active Substance: DOXAZOSIN MESYLATE
     Dosage: THE FRACTIONATION DOSE FREQUENCY IS UNCERTAIN.
     Route: 048
     Dates: start: 20150421
  7. ALECTINIB. [Suspect]
     Active Substance: ALECTINIB
     Indication: LUNG ADENOCARCINOMA
     Route: 048
     Dates: start: 20150317, end: 20150430
  8. ALECTINIB. [Suspect]
     Active Substance: ALECTINIB
     Indication: LUNG ADENOCARCINOMA
     Route: 048
     Dates: start: 20141211, end: 20150116
  9. PREMINENT [Concomitant]
     Active Substance: HYDROCHLOROTHIAZIDE\LOSARTAN POTASSIUM
     Dosage: THE FRACTIONATION DOSE FREQUENCY IS UNCERTAIN.
     Route: 048
     Dates: end: 20150222
  10. BLOPRESS [Concomitant]
     Active Substance: CANDESARTAN CILEXETIL
     Dosage: THE FRACTIONATION DOSE FREQUENCY IS UNCERTAIN.
     Route: 048
     Dates: start: 20150324, end: 20150524
  11. ALECTINIB. [Suspect]
     Active Substance: ALECTINIB
     Indication: LUNG ADENOCARCINOMA
     Route: 048
     Dates: start: 20150817
  12. AMARYL [Concomitant]
     Active Substance: GLIMEPIRIDE
     Dosage: THE FRACTIONATION DOSE FREQUENCY IS UNCERTAIN.
     Route: 048
     Dates: end: 20150420
  13. BASEN (JAPAN) [Concomitant]
     Dosage: THE FRACTIONATION DOSE FREQUENCY IS UNCERTAIN.
     Route: 048
  14. ALECTINIB. [Suspect]
     Active Substance: ALECTINIB
     Indication: LUNG ADENOCARCINOMA
     Dosage: FRACTIONATION DOSE UNCERTAIN FREQUENCY AND DOSE INTERVAL UNCERTAINTY
     Route: 048
     Dates: start: 20150511, end: 20150524
  15. ADONA (JAPAN) [Concomitant]
     Indication: LUNG ADENOCARCINOMA
     Dosage: THE FRACTIONATION DOSE FREQUENCY IS UNCERTAIN.
     Route: 048
     Dates: end: 20150331
  16. URSO [Concomitant]
     Active Substance: URSODIOL
     Dosage: THE FRACTIONATION DOSE FREQUENCY IS UNCERTAIN.
     Route: 048
  17. ADALAT CC [Concomitant]
     Active Substance: NIFEDIPINE
     Dosage: THE FRACTIONATION DOSE FREQUENCY IS UNCERTAIN.
     Route: 048
     Dates: start: 20150525

REACTIONS (3)
  - Cholangitis acute [Recovered/Resolved]
  - Haemoptysis [Recovered/Resolved]
  - Renal impairment [Not Recovered/Not Resolved]

NARRATIVE: CASE EVENT DATE: 20141208
